FAERS Safety Report 5119213-9 (Version None)
Quarter: 2006Q4

REPORT INFORMATION
  Report Type: 
  Country: None (occurrence: None)
  Receive Date: 20061003
  Receipt Date: 20060920
  Transmission Date: 20070319
  Serious: Yes (Life-Threatening, Hospitalization)
  Sender: FDA-Public Use
  Company Number: JP-JNJFOC-20060904927

PATIENT
  Age: 84 Year
  Sex: Male

DRUGS (6)
  1. ITRIZOLE [Suspect]
     Indication: NAIL TINEA
     Route: 048
  2. DIAMOX [Concomitant]
     Route: 065
  3. ASPARA K [Concomitant]
     Route: 065
  4. AZOPT [Concomitant]
     Route: 065
  5. TIMOPTIC [Concomitant]
     Route: 065
  6. XALATAN [Concomitant]
     Route: 065

REACTIONS (1)
  - ATRIOVENTRICULAR BLOCK THIRD DEGREE [None]
